FAERS Safety Report 4717091-0 (Version None)
Quarter: 2005Q3

REPORT INFORMATION
  Report Type: 
  Country: None (occurrence: None)
  Receive Date: 20050715
  Receipt Date: 20050331
  Transmission Date: 20060218
  Serious: Yes (Other)
  Sender: FDA-Public Use
  Company Number: 2005FR-00089

PATIENT
  Age: 29 Year
  Sex: Male
  Weight: 48 kg

DRUGS (5)
  1. RANITIDINE [Suspect]
     Indication: HYPERCHLORHYDRIA
     Dosage: 150 MG,
     Dates: start: 20030424, end: 20040812
  2. CLOZAPINE [Concomitant]
  3. RISPERIDONE [Concomitant]
  4. GABAPENTIN [Concomitant]
  5. LAMOTRIGINE [Concomitant]

REACTIONS (1)
  - NEUTROPENIA [None]
